FAERS Safety Report 20299066 (Version 1)
Quarter: 2022Q1

REPORT INFORMATION
  Report Type: Spontaneous
  Country: EE (occurrence: EE)
  Receive Date: 20220105
  Receipt Date: 20220105
  Transmission Date: 20220423
  Serious: Yes (Death, Other)
  Sender: FDA-Public Use
  Company Number: EE-002147023-NVSC2021EE284199

PATIENT
  Age: 70 Year
  Sex: Female

DRUGS (9)
  1. CYTARABINE [Suspect]
     Active Substance: CYTARABINE
     Indication: Acute myeloid leukaemia
     Dosage: UNK?CYTARABINE (CYTOSINE ARABINOSIDE)
     Route: 065
     Dates: start: 202010
  2. CYTARABINE [Suspect]
     Active Substance: CYTARABINE
     Dosage: UNK?CYTARABINE (CYTOSINE ARABINOSIDE)
     Route: 065
     Dates: start: 202109
  3. CYTARABINE [Suspect]
     Active Substance: CYTARABINE
     Dosage: UNK?CYTARABINE (CYTOSINE ARABINOSIDE)
     Route: 065
     Dates: start: 202106
  4. MIDOSTAURIN [Suspect]
     Active Substance: MIDOSTAURIN
     Indication: Acute myeloid leukaemia
     Dosage: UNK
     Route: 065
     Dates: start: 202008
  5. MIDOSTAURIN [Suspect]
     Active Substance: MIDOSTAURIN
     Dosage: 50 MG, BID (DAYS 8-21)
     Route: 065
     Dates: start: 202010
  6. MIDOSTAURIN [Suspect]
     Active Substance: MIDOSTAURIN
     Dosage: 50 MG, BID (MAINTENANCE THERAPY)
     Route: 065
  7. IDARUBICIN [Suspect]
     Active Substance: IDARUBICIN
     Indication: Acute myeloid leukaemia
     Dosage: UNK
     Route: 065
     Dates: start: 202010
  8. DEXAMETHASONE ACETATE [Suspect]
     Active Substance: DEXAMETHASONE ACETATE
     Indication: Acute myeloid leukaemia
     Dosage: UNK
     Route: 065
     Dates: start: 202104
  9. CHLORHEXIDINE GLUCONATE [Suspect]
     Active Substance: CHLORHEXIDINE GLUCONATE

REACTIONS (8)
  - Death [Fatal]
  - Acute myeloid leukaemia recurrent [Unknown]
  - Febrile neutropenia [Unknown]
  - Ileus [Unknown]
  - Streptococcal sepsis [Unknown]
  - Sinusitis [Unknown]
  - COVID-19 [Unknown]
  - Urinary tract infection [Unknown]

NARRATIVE: CASE EVENT DATE: 20200801
